FAERS Safety Report 9190611 (Version 1)
Quarter: 2013Q1

REPORT INFORMATION
  Report Type: Spontaneous
  Country: JP (occurrence: JP)
  Receive Date: 20130326
  Receipt Date: 20130326
  Transmission Date: 20140127
  Serious: Yes (Hospitalization)
  Sender: FDA-Public Use
  Company Number: JP-ASTRAZENECA-2013SE19352

PATIENT
  Age: 62 Year
  Sex: Male

DRUGS (4)
  1. BLOPRESS [Suspect]
     Indication: HYPERTENSION
     Route: 048
     Dates: end: 20130116
  2. LAXATIVES [Concomitant]
     Route: 065
     Dates: end: 20130116
  3. CELECOX [Concomitant]
     Route: 048
     Dates: end: 20130116
  4. METHYCOBAL [Concomitant]
     Route: 065
     Dates: end: 20130116

REACTIONS (1)
  - Rhabdomyolysis [Recovering/Resolving]
